FAERS Safety Report 9399782 (Version 1)
Quarter: 2013Q3

REPORT INFORMATION
  Report Type: Spontaneous
  Country: JP (occurrence: None)
  Receive Date: 20130710
  Receipt Date: 20130710
  Transmission Date: 20140515
  Serious: Yes (Other)
  Sender: FDA-Public Use
  Company Number: PIN-2013-00033

PATIENT
  Sex: 0

DRUGS (2)
  1. PORFIMER SODIUM [Suspect]
     Indication: GASTRIC CANCER
     Route: 042
  2. PDT [Suspect]
     Indication: GASTRIC CANCER

REACTIONS (1)
  - Pyloric stenosis [None]
